FAERS Safety Report 5719324-0 (Version None)
Quarter: 2008Q2

REPORT INFORMATION
  Report Type: 
  Country: None (occurrence: None)
  Receive Date: 20080428
  Receipt Date: 20080415
  Transmission Date: 20081010
  Serious: Yes (Other)
  Sender: FDA-Public Use
  Company Number: US-ELI_LILLY_AND_COMPANY-US200804000522

PATIENT
  Sex: Female

DRUGS (2)
  1. FORTEO [Suspect]
  2. XANAX [Concomitant]

REACTIONS (2)
  - ANXIETY [None]
  - PELVIC FRACTURE [None]
